FAERS Safety Report 16847243 (Version 2)
Quarter: 2019Q4

REPORT INFORMATION
  Report Type: Spontaneous
  Country: KR (occurrence: KR)
  Receive Date: 20190924
  Receipt Date: 20191014
  Transmission Date: 20200122
  Serious: Yes (Other)
  Sender: FDA-Public Use
  Company Number: KR-ALLERGAN-1938221US

PATIENT
  Sex: Female

DRUGS (1)
  1. OZURDEX [Suspect]
     Active Substance: DEXAMETHASONE
     Indication: VITRITIS
     Dosage: 0.7 MG, SINGLE
     Route: 031

REACTIONS (4)
  - Off label use [Unknown]
  - Chorioretinal scar [Unknown]
  - Vitritis [Unknown]
  - Eye infection toxoplasmal [Recovering/Resolving]
